FAERS Safety Report 7002450-6 (Version None)
Quarter: 2010Q3

REPORT INFORMATION
  Report Type: 
  Country: None (occurrence: None)
  Receive Date: 20100920
  Receipt Date: 20100914
  Transmission Date: 20110219
  Serious: Yes (Other)
  Sender: FDA-Public Use
  Company Number: GB-BRISTOL-MYERS SQUIBB COMPANY-15288442

PATIENT
  Sex: Male

DRUGS (1)
  1. REYATAZ [Suspect]
     Dates: start: 20100601

REACTIONS (2)
  - HYPERTENSION [None]
  - NERVOUSNESS [None]
